FAERS Safety Report 4394715-1 (Version None)
Quarter: 2004Q3

REPORT INFORMATION
  Report Type: 
  Country: None (occurrence: None)
  Receive Date: 20040712
  Receipt Date: 20040518
  Transmission Date: 20050211
  Serious: Yes (Disabling)
  Sender: FDA-Public Use
  Company Number: 200415425GDDC

PATIENT
  Age: 67 Year
  Sex: Female

DRUGS (6)
  1. ARAVA [Suspect]
     Indication: RHEUMATOID ARTHRITIS
     Route: 048
     Dates: start: 20040124, end: 20040402
  2. METHOTREXATE [Concomitant]
     Route: 048
     Dates: start: 20030527, end: 20040416
  3. PREDNISONE [Concomitant]
     Route: 048
     Dates: start: 20030527
  4. TRAMIL [Concomitant]
     Dosage: DOSE: UNK
  5. ISOPTIN TAB [Concomitant]
     Indication: HYPERTENSION
     Route: 048
  6. HYDROCHLOROTHIAZIDE [Concomitant]
     Indication: HYPERTENSION
     Route: 048

REACTIONS (7)
  - BLOOD PRESSURE INADEQUATELY CONTROLLED [None]
  - BLOOD PRESSURE INCREASED [None]
  - EATING DISORDER [None]
  - HEADACHE [None]
  - RASH ERYTHEMATOUS [None]
  - RASH PRURITIC [None]
  - TREMOR [None]
